FAERS Safety Report 6528633-7 (Version None)
Quarter: 2009Q4

REPORT INFORMATION
  Report Type: 
  Country: None (occurrence: None)
  Receive Date: 20091222
  Receipt Date: 20091105
  Transmission Date: 20100525
  Serious: No
  Sender: FDA-Public Use
  Company Number: ALL1-2009-03521

PATIENT
  Age: 38 Year
  Sex: Female
  Weight: 103.9 kg

DRUGS (3)
  1. VYVANSE [Suspect]
     Indication: ATTENTION DEFICIT/HYPERACTIVITY DISORDER
     Dosage: 30 MG, 1X/DAY: QD, ORAL
     Route: 048
     Dates: start: 20090401, end: 20090501
  2. VYVANSE [Suspect]
     Indication: ATTENTION DEFICIT/HYPERACTIVITY DISORDER
     Dosage: 30 MG, 1X/DAY: QD, ORAL
     Route: 048
     Dates: start: 20091103
  3. ALLEGRA /01314201/ (FEXOFENADINE) [Concomitant]

REACTIONS (3)
  - ALOPECIA [None]
  - THERAPEUTIC RESPONSE UNEXPECTED [None]
  - WEIGHT DECREASED [None]
